FAERS Safety Report 9564451 (Version 2)
Quarter: 2013Q4

REPORT INFORMATION
  Report Type: Spontaneous
  Country: US (occurrence: US)
  Receive Date: 20130930
  Receipt Date: 20131024
  Transmission Date: 20140711
  Serious: No
  Sender: FDA-Public Use
  Company Number: US-009507513-1309USA011516

PATIENT
  Age: 55 Year
  Sex: Male

DRUGS (3)
  1. PEGINTRON [Suspect]
     Indication: HEPATITIS C
     Dosage: 120 MICROGRAM, QW
     Dates: start: 20130808, end: 20130909
  2. REBETOL [Suspect]
     Indication: HEPATITIS C
     Dosage: 600 MG, MORNING
     Dates: start: 20130808, end: 20130909
  3. REBETOL [Suspect]
     Dosage: 400 MG, EVENING
     Dates: start: 20130808, end: 20130909

REACTIONS (2)
  - Treatment noncompliance [Unknown]
  - Inappropriate schedule of drug administration [Unknown]
